FAERS Safety Report 9924277 (Version 4)
Quarter: 2014Q2

REPORT INFORMATION
  Report Type: Report from Study
  Country: US (occurrence: US)
  Receive Date: 20140226
  Receipt Date: 20140624
  Transmission Date: 20141212
  Serious: Yes (Hospitalization)
  Sender: FDA-Public Use
  Company Number: US-PFIZER INC-2014051234

PATIENT
  Age: 49 Year
  Sex: Female
  Weight: 75.5 kg

DRUGS (13)
  1. DOXORUBICIN HCL [Suspect]
     Indication: SARCOMA METASTATIC
     Dosage: UNK
     Dates: start: 20131011
  2. DOXORUBICIN HCL [Suspect]
     Dosage: 56.25 MG/M2 (102 MG), BOLUS, CYCLE # 6
     Route: 040
     Dates: start: 20140124
  3. LISINOPRIL [Concomitant]
     Dosage: UNK
     Dates: start: 20130322
  4. HYDROCHLOROTHIAZIDE [Concomitant]
     Dosage: UNK
     Dates: start: 20130322
  5. DOCUSATE SODIUM [Concomitant]
     Dosage: UNK
  6. LORAZEPAM [Concomitant]
     Dosage: UNK
     Dates: start: 20131028
  7. ONDANSETRON [Concomitant]
     Dosage: UNK
     Dates: start: 20131011
  8. DEXAMETHASONE [Concomitant]
     Dosage: UNK
     Dates: start: 20130125, end: 20130127
  9. PROCHLORPERAZINE [Concomitant]
     Dosage: UNK
     Dates: start: 20131011
  10. MOUTH WASH [Concomitant]
     Dosage: UNK
     Dates: start: 20131018
  11. ASPIRIN [Concomitant]
     Dosage: UNK
  12. FILGRASTIM [Concomitant]
     Dosage: UNK
     Dates: start: 20140110
  13. NEULASTA [Concomitant]
     Dosage: UNK
     Dates: start: 20140110

REACTIONS (1)
  - Dyspnoea [Recovered/Resolved]
